FAERS Safety Report 26088167 (Version 1)
Quarter: 2025Q4

REPORT INFORMATION
  Report Type: Spontaneous
  Country: US (occurrence: US)
  Receive Date: 20251125
  Receipt Date: 20251125
  Transmission Date: 20260117
  Serious: No
  Sender: NOVARTIS
  Company Number: US-002147023-NVSC2025US180422

PATIENT
  Sex: Male

DRUGS (1)
  1. NETSPOT [Suspect]
     Active Substance: GALLIUM OXODOTREOTIDE GA-68
     Indication: Neuroendocrine tumour
     Dosage: UNK
     Route: 065

REACTIONS (2)
  - Pharyngeal paraesthesia [Unknown]
  - Paraesthesia [Unknown]
